FAERS Safety Report 24864630 (Version 1)
Quarter: 2025Q1

REPORT INFORMATION
  Report Type: Spontaneous
  Country: GB (occurrence: GB)
  Receive Date: 20250120
  Receipt Date: 20250120
  Transmission Date: 20250409
  Serious: Yes (Other)
  Sender: ACCORD
  Company Number: None

PATIENT
  Age: 58 Year
  Sex: Male
  Weight: 118 kg

DRUGS (3)
  1. ATORVASTATIN [Suspect]
     Active Substance: ATORVASTATIN
     Indication: Product used for unknown indication
     Dosage: STRENGTH: 40 MG, AIM NON-HDL +LT; 2.6 / LDL +LT; 2.0
     Dates: start: 20241016
  2. CANDESARTAN [Concomitant]
     Active Substance: CANDESARTAN
     Dates: start: 20240309
  3. ROSUVASTATIN [Concomitant]
     Active Substance: ROSUVASTATIN
     Dates: start: 20241221

REACTIONS (1)
  - Headache [Recovered/Resolved]
